FAERS Safety Report 5013460-2 (Version None)
Quarter: 2006Q2

REPORT INFORMATION
  Report Type: 
  Country: None (occurrence: None)
  Receive Date: 20060525
  Receipt Date: 20060525
  Transmission Date: 20061013
  Serious: Yes (Other)
  Sender: FDA-Public Use
  Company Number: None

PATIENT
  Age: 74 Year
  Sex: Male
  Weight: 76.4 kg

DRUGS (13)
  1. TIGECYCLINE [Suspect]
     Indication: CLOSTRIDIAL INFECTION
     Dosage: 50 MG EVERY 12 HOURS IV
     Route: 042
     Dates: start: 20060410, end: 20060412
  2. TIGECYCLINE [Suspect]
     Indication: MELAENA
     Dosage: 50 MG EVERY 12 HOURS IV
     Route: 042
     Dates: start: 20060410, end: 20060412
  3. DOFETILIDE [Suspect]
     Indication: ATRIAL FIBRILLATION
     Dosage: 500 MCG BID PO
     Route: 048
     Dates: start: 20050315, end: 20060412
  4. DOFETILIDE [Suspect]
     Indication: IMPLANTABLE DEFIBRILLATOR INSERTION
     Dosage: 500 MCG BID PO
     Route: 048
     Dates: start: 20050315, end: 20060412
  5. NORVASC [Concomitant]
  6. LIPITOR [Concomitant]
  7. TYLENOL (CAPLET) [Concomitant]
  8. BENADRYL [Concomitant]
  9. ADVAIR DISKUS 100/50 [Concomitant]
  10. GUAIFENESIN SR [Concomitant]
  11. LEVOTHYROXINE SODIUM [Concomitant]
  12. METRONIDAZOLE [Concomitant]
  13. VANCOMYCIN [Concomitant]

REACTIONS (4)
  - DEHYDRATION [None]
  - DRUG INTERACTION [None]
  - ELECTROCARDIOGRAM QT CORRECTED INTERVAL PROLONGED [None]
  - ELECTROCARDIOGRAM QT PROLONGED [None]
